FAERS Safety Report 20941556 (Version 1)
Quarter: 2022Q2

REPORT INFORMATION
  Report Type: Other
  Country: US (occurrence: None)
  Receive Date: 20220610
  Receipt Date: 20220610
  Transmission Date: 20220721
  Serious: No
  Sender: FDA-Public Use
  Company Number: US-ROCHE-3113860

PATIENT
  Sex: Female
  Weight: 69.916 kg

DRUGS (1)
  1. OCREVUS [Suspect]
     Active Substance: OCRELIZUMAB
     Indication: Multiple sclerosis
     Dosage: YES: INFUSE 300 MG DAY ONE; THEN 300 MG DAY 15 AND INFUSE 600 MG Q 6 MOS.
     Route: 065
     Dates: start: 201911

REACTIONS (4)
  - Smear cervix abnormal [Not Recovered/Not Resolved]
  - COVID-19 [Recovered/Resolved]
  - Dry eye [Not Recovered/Not Resolved]
  - Immunosuppression [Unknown]

NARRATIVE: CASE EVENT DATE: 20220101
